FAERS Safety Report 16678699 (Version 2)
Quarter: 2019Q3

REPORT INFORMATION
  Report Type: Report from Study
  Country: US (occurrence: US)
  Receive Date: 20190807
  Receipt Date: 20190822
  Transmission Date: 20191004
  Serious: Yes (Hospitalization, Other)
  Sender: FDA-Public Use
  Company Number: US-NOVOPROD-677246

PATIENT
  Age: 15 Month
  Sex: Male
  Weight: 9 kg

DRUGS (3)
  1. N8-GP 500U VIAL [Suspect]
     Active Substance: TUROCTOCOG ALFA PEGOL
     Indication: FACTOR VIII DEFICIENCY
     Dosage: 60.0,U/KG,
     Route: 040
     Dates: start: 20190515
  2. N8-GP 500U VIAL [Suspect]
     Active Substance: TUROCTOCOG ALFA PEGOL
     Dosage: UNK
     Dates: start: 20190723, end: 20190723
  3. N8-GP 500U VIAL [Suspect]
     Active Substance: TUROCTOCOG ALFA PEGOL
     Dosage: UNK
     Dates: start: 20190724, end: 20190724

REACTIONS (1)
  - Factor VIII inhibition [Not Recovered/Not Resolved]

NARRATIVE: CASE EVENT DATE: 20190723
